FAERS Safety Report 4800094-5 (Version None)
Quarter: 2005Q4

REPORT INFORMATION
  Report Type: 
  Country: None (occurrence: None)
  Receive Date: 20051012
  Receipt Date: 20051012
  Transmission Date: 20060501
  Serious: Yes (Hospitalization)
  Sender: FDA-Public Use
  Company Number: None

PATIENT
  Age: 59 Year
  Sex: Female

DRUGS (2)
  1. GEMCITABINE [Suspect]
     Indication: TONGUE NEOPLASM MALIGNANT STAGE UNSPECIFIED
     Dosage: 1000 MG/M2, DAYS 1 + 8 Q 21 DAYS
     Dates: start: 20050907
  2. DOXORUBICIN HCL [Suspect]
     Dosage: 25 MG /M2 DAYS 1 + 8 Q 21 DAYS
     Dates: start: 20050914

REACTIONS (1)
  - PNEUMONIA ASPIRATION [None]
